FAERS Safety Report 16540049 (Version 1)
Quarter: 2019Q3

REPORT INFORMATION
  Report Type: Spontaneous
  Country: AU (occurrence: AU)
  Receive Date: 20190708
  Receipt Date: 20190708
  Transmission Date: 20191004
  Serious: Yes (Other)
  Sender: FDA-Public Use
  Company Number: AU-ELI_LILLY_AND_COMPANY-AU201906014216

PATIENT
  Sex: Male

DRUGS (4)
  1. CIALIS [Suspect]
     Active Substance: TADALAFIL
     Indication: ERECTILE DYSFUNCTION
     Dosage: 0.5 DOSAGE FORM, UNKNOWN
     Route: 048
     Dates: start: 2011
  2. CIALIS [Suspect]
     Active Substance: TADALAFIL
     Indication: URINARY TRACT DISORDER
  3. CIALIS [Suspect]
     Active Substance: TADALAFIL
     Indication: ERECTILE DYSFUNCTION
     Dosage: 5 MG, EACH MORNING
     Route: 048
     Dates: start: 2014
  4. VIAGRA [Concomitant]
     Active Substance: SILDENAFIL CITRATE
     Indication: ERECTILE DYSFUNCTION
     Dosage: UNK, UNKNOWN

REACTIONS (2)
  - Therapeutic response decreased [Unknown]
  - Prostate cancer [Unknown]
